FAERS Safety Report 18017012 (Version 2)
Quarter: 2020Q3

REPORT INFORMATION
  Report Type: Spontaneous
  Country: US (occurrence: US)
  Receive Date: 20200713
  Receipt Date: 20200928
  Transmission Date: 20201103
  Serious: No
  Sender: FDA-Public Use
  Company Number: US-PFIZER INC-2020266413

PATIENT
  Age: 39 Year
  Sex: Female

DRUGS (1)
  1. PREMARIN [Suspect]
     Active Substance: ESTROGENS, CONJUGATED
     Indication: HYSTERECTOMY
     Dosage: 0.625 TABLET BY MOUTH ONCE A DAY
     Route: 048
     Dates: start: 1982

REACTIONS (7)
  - Off label use [Unknown]
  - Incorrect product administration duration [Unknown]
  - Intentional product misuse [Unknown]
  - Memory impairment [Unknown]
  - Hot flush [Recovered/Resolved]
  - Product use in unapproved indication [Unknown]
  - Headache [Recovered/Resolved]

NARRATIVE: CASE EVENT DATE: 1982
